FAERS Safety Report 25340034 (Version 2)
Quarter: 2025Q3

REPORT INFORMATION
  Report Type: Report from Study
  Country: US (occurrence: US)
  Receive Date: 20250521
  Receipt Date: 20250715
  Transmission Date: 20251020
  Serious: Yes (Other)
  Sender: SUNOVION
  Company Number: US-SMPA-2025SPA005797

PATIENT

DRUGS (2)
  1. ORGOVYX [Suspect]
     Active Substance: RELUGOLIX
     Indication: Prostate cancer
     Route: 048
  2. ORGOVYX [Suspect]
     Active Substance: RELUGOLIX
     Dosage: 120 MG, QD
     Route: 048
     Dates: start: 20250317

REACTIONS (7)
  - Nephrolithiasis [Unknown]
  - Nocturia [Unknown]
  - Chills [Unknown]
  - Emotional disorder [Unknown]
  - Dizziness postural [Unknown]
  - Loss of libido [Unknown]
  - Hot flush [Unknown]
